FAERS Safety Report 5269380-1 (Version None)
Quarter: 2007Q1

REPORT INFORMATION
  Report Type: 
  Country: None (occurrence: None)
  Receive Date: 20070319
  Receipt Date: 20070307
  Transmission Date: 20070707
  Serious: Yes (Other)
  Sender: FDA-Public Use
  Company Number: DE-PFIZER INC-2007019091

PATIENT
  Age: 50 Year
  Sex: Female

DRUGS (4)
  1. CABASERIL [Suspect]
     Indication: PARKINSONISM
     Route: 048
  2. SIFROL [Concomitant]
  3. STALEVO 100 [Concomitant]
  4. ALL OTHER THERAPEUTIC PRODUCTS [Concomitant]

REACTIONS (3)
  - BACK DISORDER [None]
  - PARKINSONIAN GAIT [None]
  - TREMOR [None]
